FAERS Safety Report 21265990 (Version 1)
Quarter: 2022Q3

REPORT INFORMATION
  Report Type: Spontaneous
  Country: US (occurrence: None)
  Receive Date: 20220826
  Receipt Date: 20220826
  Transmission Date: 20221027
  Serious: Yes (Hospitalization)
  Sender: FDA-Public Use
  Company Number: None

PATIENT
  Age: 53 Year
  Sex: Female

DRUGS (37)
  1. HUMIRA [Suspect]
     Active Substance: ADALIMUMAB
     Indication: Rheumatoid arthritis
     Dosage: OTHER QUANTITY : 40 MG/0.4ML;?
     Route: 058
     Dates: start: 20210911
  2. AIMOVIG [Concomitant]
     Active Substance: ERENUMAB-AOOE
  3. ALBUTEROL [Concomitant]
  4. ALENDRONATE [Concomitant]
     Active Substance: ALENDRONATE SODIUM
  5. ALPRAZOLAM [Concomitant]
     Active Substance: ALPRAZOLAM
  6. AZITHROMYCIN [Concomitant]
     Active Substance: AZITHROMYCIN
  7. AZITHROMYCIN [Concomitant]
     Active Substance: AZITHROMYCIN
  8. BACLOFEN [Concomitant]
     Active Substance: BACLOFEN
  9. CEVIMELINE [Concomitant]
     Active Substance: CEVIMELINE
  10. COMBIVENT [Concomitant]
     Active Substance: ALBUTEROL SULFATE\IPRATROPIUM BROMIDE
  11. CYANOCOBALAMIN [Concomitant]
     Active Substance: CYANOCOBALAMIN
  12. CYMBALTA [Concomitant]
     Active Substance: DULOXETINE HYDROCHLORIDE
  13. DEXAMETH PHO [Concomitant]
  14. DEXAMETHASON [Concomitant]
  15. DICLOFENAC [Concomitant]
     Active Substance: DICLOFENAC
  16. DULOXETINE [Concomitant]
     Active Substance: DULOXETINE
  17. ELIQUIS [Concomitant]
     Active Substance: APIXABAN
  18. ENBREL SRCLK [Concomitant]
  19. FAMOTIDINE [Concomitant]
     Active Substance: FAMOTIDINE
  20. FINASTERIDE [Concomitant]
     Active Substance: FINASTERIDE
  21. FLUTICASONE [Concomitant]
     Active Substance: FLUTICASONE
  22. GABAPENTIN [Concomitant]
     Active Substance: GABAPENTIN
  23. ACETAMINOPHEN\HYDROCODONE [Concomitant]
     Active Substance: ACETAMINOPHEN\HYDROCODONE
  24. HYDROXYCHLOROQUINE [Concomitant]
     Active Substance: HYDROXYCHLOROQUINE
  25. KENALOG [Concomitant]
     Active Substance: TRIAMCINOLONE ACETONIDE
  26. LEFLUNOMIDE [Concomitant]
     Active Substance: LEFLUNOMIDE
  27. METHYLPR ACE [Concomitant]
  28. METHYLPREDNISOLONE [Concomitant]
     Active Substance: METHYLPREDNISOLONE
  29. OXCARBAZEPINE [Concomitant]
     Active Substance: OXCARBAZEPINE
  30. OXYBUTYNIN [Concomitant]
     Active Substance: OXYBUTYNIN
  31. PREDNISONE [Concomitant]
     Active Substance: PREDNISONE
  32. QUETIAPINE [Concomitant]
     Active Substance: QUETIAPINE
  33. SEROQUEL [Concomitant]
  34. TOPIRAMATE [Concomitant]
     Active Substance: TOPIRAMATE
  35. TRAMADOL HCL [Concomitant]
  36. XANAX XR [Concomitant]
     Active Substance: ALPRAZOLAM
  37. ZOFRAN [Concomitant]
     Active Substance: ONDANSETRON HYDROCHLORIDE

REACTIONS (2)
  - Pneumonia [None]
  - Bacterial infection [None]

NARRATIVE: CASE EVENT DATE: 20220803
